FAERS Safety Report 6012701-2 (Version None)
Quarter: 2008Q4

REPORT INFORMATION
  Report Type: 
  Country: None (occurrence: None)
  Receive Date: 20081208
  Receipt Date: 20081205
  Transmission Date: 20090506
  Serious: Yes (Hospitalization)
  Sender: FDA-Public Use
  Company Number: GB-IGSA-IG534

PATIENT
  Age: 72 Year
  Sex: Female

DRUGS (1)
  1. FLEBOGAMMA [Suspect]
     Indication: HYPOGAMMAGLOBULINAEMIA
     Dosage: IV
     Route: 042
     Dates: start: 20081101

REACTIONS (3)
  - ALVEOLITIS ALLERGIC [None]
  - DYSPNOEA [None]
  - PYREXIA [None]
